FAERS Safety Report 6078470-5 (Version None)
Quarter: 2009Q1

REPORT INFORMATION
  Report Type: 
  Country: None (occurrence: None)
  Receive Date: 20090212
  Receipt Date: 20090212
  Transmission Date: 20090719
  Serious: Yes (Hospitalization)
  Sender: FDA-Public Use
  Company Number: None

PATIENT
  Age: 60 Year
  Sex: Female
  Weight: 65.57 kg

DRUGS (2)
  1. CUBICIN [Suspect]
     Indication: ARTHRITIS BACTERIAL
     Dosage: 600MG DAILY IV
     Route: 042
     Dates: start: 20081124, end: 20081210
  2. CUBICIN [Suspect]
     Indication: STAPHYLOCOCCAL BACTERAEMIA
     Dosage: 600MG DAILY IV
     Route: 042
     Dates: start: 20081124, end: 20081210

REACTIONS (1)
  - MYOPATHY [None]
